FAERS Safety Report 5740268-2 (Version None)
Quarter: 2008Q2

REPORT INFORMATION
  Report Type: 
  Country: None (occurrence: None)
  Receive Date: 20080516
  Receipt Date: 20080507
  Transmission Date: 20081010
  Serious: Yes (Hospitalization)
  Sender: FDA-Public Use
  Company Number: US-JNJFOC-20080501816

PATIENT
  Age: 35 Year
  Sex: Female

DRUGS (3)
  1. TOLECTIN [Suspect]
     Indication: PAIN IN EXTREMITY
     Route: 065
  2. TOLECTIN [Suspect]
     Indication: HAEMATOMA
     Route: 065
  3. ASPIRIN [Suspect]
     Indication: PAIN
     Route: 065

REACTIONS (3)
  - ASTHENIA [None]
  - DYSPNOEA [None]
  - HAEMOLYTIC ANAEMIA [None]
